FAERS Safety Report 16101633 (Version 3)
Quarter: 2019Q2

REPORT INFORMATION
  Report Type: Report from Study
  Country: US (occurrence: US)
  Receive Date: 20190321
  Receipt Date: 20190410
  Transmission Date: 20190711
  Serious: No
  Sender: FDA-Public Use
  Company Number: US-ROCHE-2287343

PATIENT
  Age: 68 Year
  Sex: Female

DRUGS (13)
  1. LOSARTAN. [Concomitant]
     Active Substance: LOSARTAN
     Route: 065
  2. VITAMIN B12 [Concomitant]
     Active Substance: CYANOCOBALAMIN
     Route: 048
  3. OCREVUS [Suspect]
     Active Substance: OCRELIZUMAB
     Route: 065
  4. AMLODIPINE [Concomitant]
     Active Substance: AMLODIPINE BESYLATE
     Route: 065
  5. OCREVUS [Suspect]
     Active Substance: OCRELIZUMAB
     Indication: MULTIPLE SCLEROSIS
     Dosage: 2ND HALF DOSE
     Route: 065
     Dates: start: 20190306
  6. OCREVUS [Suspect]
     Active Substance: OCRELIZUMAB
     Route: 065
  7. SINGULAIR [Concomitant]
     Active Substance: MONTELUKAST SODIUM
     Route: 048
  8. VITAMIN D3 [Concomitant]
     Active Substance: CHOLECALCIFEROL
     Route: 048
  9. TIZANIDINE. [Concomitant]
     Active Substance: TIZANIDINE
     Indication: MUSCLE SPASMS
     Dosage: 1 TAB IN MORNING, 3 TAB AT BEDTIME
     Route: 048
  10. ASPIR (UNK INGREDIENTS) [Concomitant]
     Route: 048
  11. CYMBALTA [Concomitant]
     Active Substance: DULOXETINE HYDROCHLORIDE
     Route: 048
  12. OCREVUS [Suspect]
     Active Substance: OCRELIZUMAB
     Indication: RELAPSING MULTIPLE SCLEROSIS
     Dosage: 2 INFUSIONS GIVEN AS LOADING DOSE 2 WEEKS APART
     Route: 011
     Dates: start: 20190220
  13. ATORVASTATIN [Concomitant]
     Active Substance: ATORVASTATIN
     Route: 061

REACTIONS (7)
  - Respiratory tract infection [Not Recovered/Not Resolved]
  - Disturbance in attention [Unknown]
  - Headache [Not Recovered/Not Resolved]
  - Malaise [Not Recovered/Not Resolved]
  - Feeling abnormal [Unknown]
  - Abulia [Unknown]
  - Aphasia [Unknown]

NARRATIVE: CASE EVENT DATE: 20190313
